FAERS Safety Report 9541890 (Version 1)
Quarter: 2013Q3

REPORT INFORMATION
  Report Type: Spontaneous
  Country: US (occurrence: US)
  Receive Date: 20130923
  Receipt Date: 20130923
  Transmission Date: 20140515
  Serious: Yes (Hospitalization)
  Sender: FDA-Public Use
  Company Number: PHEH2013US019719

PATIENT
  Age: 17 Year
  Sex: Male
  Weight: 81 kg

DRUGS (2)
  1. GILENYA [Suspect]
     Indication: RELAPSING-REMITTING MULTIPLE SCLEROSIS
     Dosage: 0.5 MG, QD
     Route: 048
     Dates: start: 20130906
  2. GILENYA [Suspect]
     Indication: OFF LABEL USE

REACTIONS (3)
  - Supraventricular extrasystoles [Recovered/Resolved]
  - Atrioventricular block second degree [Recovered/Resolved]
  - Heart rate decreased [Recovered/Resolved]
